FAERS Safety Report 6266365-3 (Version None)
Quarter: 2009Q3

REPORT INFORMATION
  Report Type: 
  Country: None (occurrence: None)
  Receive Date: 20090713
  Receipt Date: 20090702
  Transmission Date: 20100115
  Serious: Yes (Other)
  Sender: FDA-Public Use
  Company Number: PHHY2009CA27079

PATIENT
  Sex: Male

DRUGS (2)
  1. CLOZARIL [Suspect]
     Dosage: 300 MG, HS
     Route: 048
     Dates: start: 20090216, end: 20090630
  2. ATROPINE [Concomitant]
     Dosage: 1-2 DROPS BID PRN
     Dates: start: 20090501

REACTIONS (6)
  - DRY MOUTH [None]
  - DYSPHAGIA [None]
  - FEELING ABNORMAL [None]
  - MALAISE [None]
  - PARAESTHESIA [None]
  - SENSATION OF PRESSURE [None]
